FAERS Safety Report 8444951-X (Version None)
Quarter: 2012Q2

REPORT INFORMATION
  Report Type: 
  Country: None (occurrence: None)
  Receive Date: 20120611
  Receipt Date: 20120531
  Transmission Date: 20120825
  Serious: Yes (Life-Threatening, Hospitalization, Congenital Anomaly)
  Sender: FDA-Public Use
  Company Number: DSA_57652_2012

PATIENT
  Sex: Male

DRUGS (1)
  1. WELLBUTRIN [Suspect]
     Indication: PRODUCT USED FOR UNKNOWN INDICATION
     Dosage: (DF TRANSPLACENTAL)
     Route: 064

REACTIONS (5)
  - HYDROCEPHALUS [None]
  - EAR TUBE INSERTION [None]
  - BICUSPID AORTIC VALVE [None]
  - FOETAL EXPOSURE DURING PREGNANCY [None]
  - EYE OPERATION [None]
